FAERS Safety Report 9992882 (Version 1)
Quarter: 2014Q1

REPORT INFORMATION
  Report Type: Spontaneous
  Country: US (occurrence: US)
  Receive Date: 20140310
  Receipt Date: 20140310
  Transmission Date: 20141002
  Serious: Yes (Other)
  Sender: FDA-Public Use
  Company Number: US-BRISTOL-MYERS SQUIBB COMPANY-20379699

PATIENT
  Sex: Female

DRUGS (2)
  1. BYETTA [Suspect]
     Dates: start: 20081215, end: 20090115
  2. VICTOZA [Suspect]
     Dosage: 24AUG10-24SEP10; 12JAN2012-11MAR12
     Dates: start: 20100824

REACTIONS (1)
  - Pancreatic carcinoma [Unknown]
